FAERS Safety Report 7162304-1 (Version None)
Quarter: 2010Q4

REPORT INFORMATION
  Report Type: 
  Country: None (occurrence: None)
  Receive Date: 20101215
  Receipt Date: 20101207
  Transmission Date: 20110411
  Serious: Yes (Death, Hospitalization)
  Sender: FDA-Public Use
  Company Number: KR-JNJFOC-20101204575

PATIENT
  Age: 8 Year
  Sex: Male

DRUGS (8)
  1. ITRACONAZOLE [Suspect]
     Indication: PNEUMONIA FUNGAL
     Route: 065
  2. TEICOPLANIN [Suspect]
     Indication: PRODUCT USED FOR UNKNOWN INDICATION
     Route: 065
  3. MEROPENEM [Suspect]
     Indication: PRODUCT USED FOR UNKNOWN INDICATION
     Route: 065
  4. PREDNISOLONE [Suspect]
     Indication: CHEMOTHERAPY
     Route: 065
  5. DAUNORUBICIN HCL [Suspect]
     Indication: CHEMOTHERAPY
     Route: 065
  6. ELSPAR [Suspect]
     Indication: CHEMOTHERAPY
     Route: 065
  7. VINCRISTINE [Suspect]
     Indication: CHEMOTHERAPY
     Route: 065
  8. CYTARABINE [Suspect]
     Indication: CHEMOTHERAPY
     Route: 065

REACTIONS (4)
  - DRUG INEFFECTIVE [None]
  - RENAL FAILURE [None]
  - SEPTIC SHOCK [None]
  - SKIN NODULE [None]
